FAERS Safety Report 12970614 (Version 1)
Quarter: 2016Q4

REPORT INFORMATION
  Report Type: Not Available
  Country: US (occurrence: US)
  Receive Date: 20161123
  Receipt Date: 20161123
  Transmission Date: 20170207
  Serious: No
  Sender: FDA-Public Use
  Company Number: US-MIDATECHPHARMA-2016-US-000606

PATIENT
  Age: 80 Year
  Sex: Male

DRUGS (4)
  1. ORAVIG [Suspect]
     Active Substance: MICONAZOLE
     Dosage: 1 TABLET DAILY
     Route: 048
     Dates: start: 20160207, end: 201602
  2. RANITIDINE. [Concomitant]
     Active Substance: RANITIDINE
  3. RESTASIS [Concomitant]
     Active Substance: CYCLOSPORINE
  4. LIPITOR [Concomitant]
     Active Substance: ATORVASTATIN CALCIUM

REACTIONS (3)
  - Application site swelling [Unknown]
  - Application site irritation [Unknown]
  - Exposure via ingestion [Unknown]

NARRATIVE: CASE EVENT DATE: 20160210
